FAERS Safety Report 6530738-1 (Version None)
Quarter: 2010Q1

REPORT INFORMATION
  Report Type: 
  Country: None (occurrence: None)
  Receive Date: 20100108
  Receipt Date: 20090105
  Transmission Date: 20100710
  Serious: No
  Sender: FDA-Public Use
  Company Number: A0762346A

PATIENT

DRUGS (1)
  1. LOVAZA [Suspect]
     Route: 048

REACTIONS (5)
  - ABNORMAL FAECES [None]
  - BOWEL MOVEMENT IRREGULARITY [None]
  - DYSGEUSIA [None]
  - FLATULENCE [None]
  - WEIGHT INCREASED [None]
